FAERS Safety Report 6478091-6 (Version None)
Quarter: 2009Q4

REPORT INFORMATION
  Report Type: 
  Country: None (occurrence: None)
  Receive Date: 20091207
  Receipt Date: 20091201
  Transmission Date: 20100525
  Serious: Yes (Hospitalization, Disabling, Other)
  Sender: FDA-Public Use
  Company Number: US-MERCK-0906USA02846

PATIENT
  Age: 54 Year
  Sex: Male
  Weight: 91 kg

DRUGS (6)
  1. FOSAMAX [Suspect]
     Indication: MULTIPLE MYELOMA
     Route: 048
     Dates: start: 19980101
  2. FOSAMAX [Suspect]
     Route: 048
     Dates: start: 19980601
  3. FOSAMAX [Suspect]
     Route: 048
     Dates: start: 20000101
  4. FOSAMAX [Suspect]
     Route: 048
     Dates: start: 20010901
  5. FOSAMAX [Suspect]
     Route: 048
     Dates: start: 20020201
  6. FOSAMAX [Suspect]
     Route: 048
     Dates: start: 20030101, end: 20030101

REACTIONS (22)
  - ACTINOMYCOSIS [None]
  - ALVEOLAR OSTEITIS [None]
  - APHTHOUS STOMATITIS [None]
  - BLADDER PAIN [None]
  - BREATH ODOUR [None]
  - DENTAL CARIES [None]
  - DRUG ADMINISTRATION ERROR [None]
  - GINGIVAL RECESSION [None]
  - HYPERTENSION [None]
  - INAPPROPRIATE SCHEDULE OF DRUG ADMINISTRATION [None]
  - MULTIPLE MYELOMA [None]
  - NEOPLASM MALIGNANT [None]
  - OSTEOMYELITIS [None]
  - OSTEONECROSIS [None]
  - OVERDOSE [None]
  - PERICORONITIS [None]
  - POSTNASAL DRIP [None]
  - TOOTH ABSCESS [None]
  - TOOTH DISORDER [None]
  - TOOTH FRACTURE [None]
  - TOOTH IMPACTED [None]
  - TOOTH INFECTION [None]
